FAERS Safety Report 5917530-3 (Version None)
Quarter: 2008Q4

REPORT INFORMATION
  Report Type: 
  Country: None (occurrence: None)
  Receive Date: 20081014
  Receipt Date: 20081006
  Transmission Date: 20090506
  Serious: Yes (Other)
  Sender: FDA-Public Use
  Company Number: JP-ASTRAZENECA-2007AP06439

PATIENT
  Age: 59 Year
  Sex: Female

DRUGS (2)
  1. XYLOCAINE [Suspect]
     Indication: LOCAL ANAESTHESIA
     Route: 048
     Dates: start: 20070625, end: 20070625
  2. XYLOCAINE [Suspect]
     Indication: LOCAL ANAESTHESIA
     Route: 048
     Dates: start: 20070625, end: 20070625

REACTIONS (4)
  - ANAPHYLACTIC SHOCK [None]
  - NO REACTION ON PREVIOUS EXPOSURE TO DRUG [None]
  - SHOCK [None]
  - URTICARIA [None]
